FAERS Safety Report 23165710 (Version 1)
Quarter: 2023Q4

REPORT INFORMATION
  Report Type: Spontaneous
  Country: US (occurrence: US)
  Receive Date: 20231109
  Receipt Date: 20231109
  Transmission Date: 20240110
  Serious: No
  Sender: FDA-Public Use
  Company Number: US-GLAXOSMITHKLINE-US2023AMR151321

PATIENT
  Sex: Female

DRUGS (2)
  1. ZEJULA [Suspect]
     Active Substance: NIRAPARIB
     Indication: Ovarian cancer
     Dosage: 100 MG, QD
     Route: 048
     Dates: start: 20231001
  2. ZEJULA [Suspect]
     Active Substance: NIRAPARIB
     Dosage: UNK (DOSE DECREASED)

REACTIONS (8)
  - Hot flush [Unknown]
  - Dehydration [Unknown]
  - Flatulence [Unknown]
  - Hypoaesthesia [Unknown]
  - Fatigue [Unknown]
  - Pyrexia [Unknown]
  - Tinnitus [Unknown]
  - Myalgia [Unknown]

NARRATIVE: CASE EVENT DATE: 20231001
